FAERS Safety Report 8277781-2 (Version None)
Quarter: 2012Q2

REPORT INFORMATION
  Report Type: 
  Country: None (occurrence: None)
  Receive Date: 20120412
  Receipt Date: 20120402
  Transmission Date: 20120825
  Serious: Yes (Hospitalization)
  Sender: FDA-Public Use
  Company Number: IT-ELI_LILLY_AND_COMPANY-IT201204000728

PATIENT
  Sex: Female

DRUGS (2)
  1. DEPAKENE [Concomitant]
     Dosage: UNK MG, UNK
  2. ZYPREXA [Suspect]
     Indication: SCHIZOPHRENIA
     Dosage: 5 MG, EACH EVENING
     Route: 048
     Dates: start: 20120328, end: 20120329

REACTIONS (4)
  - HYPOTENSION [None]
  - PRESYNCOPE [None]
  - NAUSEA [None]
  - SOPOR [None]
